FAERS Safety Report 5781000-6 (Version None)
Quarter: 2008Q2

REPORT INFORMATION
  Report Type: 
  Country: None (occurrence: None)
  Receive Date: 20080620
  Receipt Date: 20080612
  Transmission Date: 20081010
  Serious: Yes (Hospitalization)
  Sender: FDA-Public Use
  Company Number: FR-ABBOTT-08P-056-0457114-00

PATIENT
  Age: 25 Year
  Sex: Female

DRUGS (3)
  1. KALETRA [Suspect]
     Indication: HIV INFECTION
     Dosage: 2 TABLETS, TWICE A DAY
     Route: 048
     Dates: start: 20080229, end: 20080331
  2. EMTRICITABINE W/TENOFOVIR [Suspect]
     Indication: HIV INFECTION
     Dosage: 200MG/245MG, DAILY
     Route: 048
     Dates: start: 20080229, end: 20080331
  3. BACTRIM [Suspect]
     Indication: HIV INFECTION
     Dosage: 1 DOSAGE FORM, DAILY
     Route: 048
     Dates: start: 20080229

REACTIONS (3)
  - ERYTHEMA NODOSUM [None]
  - PAIN [None]
  - RASH PAPULAR [None]
